FAERS Safety Report 9769646 (Version 1)
Quarter: 2013Q4

REPORT INFORMATION
  Report Type: Spontaneous
  Country: US (occurrence: US)
  Receive Date: 20131218
  Receipt Date: 20131218
  Transmission Date: 20140711
  Serious: Yes (Other)
  Sender: FDA-Public Use
  Company Number: US-BAYER-2013-151854

PATIENT
  Age: 53 Year
  Sex: Female

DRUGS (1)
  1. ALEVE CAPLET [Suspect]
     Indication: PAIN IN EXTREMITY
     Dosage: UNK
     Route: 048
     Dates: end: 20131207

REACTIONS (4)
  - Bloody discharge [Not Recovered/Not Resolved]
  - Haemorrhage [None]
  - Therapeutic product ineffective [None]
  - Wrong technique in drug usage process [None]
